FAERS Safety Report 21095511 (Version 8)
Quarter: 2022Q4

REPORT INFORMATION
  Report Type: Report from Study
  Country: US (occurrence: US)
  Receive Date: 20220718
  Receipt Date: 20221107
  Transmission Date: 20230113
  Serious: No
  Sender: FDA-Public Use
  Company Number: US-NOVARTISTESTPH-NVSC2022US159495

PATIENT
  Age: 79 Year
  Sex: Female

DRUGS (5)
  1. ENTRESTO [Suspect]
     Active Substance: SACUBITRIL\VALSARTAN
     Indication: Cardiac failure congestive
     Dosage: 1 DOSAGE FORM, BID (STARTED TWO YEARS AGO FOR 3 MONTHS)
     Route: 048
     Dates: start: 202204
  2. ENTRESTO [Suspect]
     Active Substance: SACUBITRIL\VALSARTAN
     Dosage: 1 DOSAGE FORM, BID
     Route: 048
     Dates: start: 202206
  3. ENTRESTO [Suspect]
     Active Substance: SACUBITRIL\VALSARTAN
     Dosage: 1 DOSAGE FORM, QD (1 PILL AT BED TIME)
     Route: 048
     Dates: start: 2022
  4. FARXIGA [Concomitant]
     Active Substance: DAPAGLIFLOZIN PROPANEDIOL
     Indication: Product used for unknown indication
     Dosage: UNK
     Route: 065
  5. LORTAB [Concomitant]
     Active Substance: ACETAMINOPHEN\HYDROCODONE BITARTRATE
     Indication: Product used for unknown indication
     Dosage: UNK
     Route: 065

REACTIONS (17)
  - Gout [Recovered/Resolved]
  - Dysstasia [Unknown]
  - Gait disturbance [Unknown]
  - Varicose vein [Unknown]
  - Pain [Unknown]
  - Feeling abnormal [Unknown]
  - Fungal infection [Not Recovered/Not Resolved]
  - Incontinence [Unknown]
  - Weight decreased [Unknown]
  - Glycosylated haemoglobin increased [Unknown]
  - Dyspnoea [Unknown]
  - Nasopharyngitis [Unknown]
  - Dizziness [Unknown]
  - Diarrhoea [Unknown]
  - Cough [Unknown]
  - Inappropriate schedule of product administration [Unknown]
  - Product dose omission issue [Unknown]

NARRATIVE: CASE EVENT DATE: 20220704
